FAERS Safety Report 5202326-0 (Version None)
Quarter: 2006Q4

REPORT INFORMATION
  Report Type: 
  Country: None (occurrence: None)
  Receive Date: 20061012
  Receipt Date: 20060419
  Transmission Date: 20070319
  Serious: Yes (Other)
  Sender: FDA-Public Use
  Company Number: US-JNJFOC-20060404376

PATIENT
  Age: 49 Year
  Sex: Female
  Weight: 114.76 kg

DRUGS (1)
  1. NESIRITIDE (NESIRITIDE) INJECTION [Suspect]
     Indication: CARDIAC FAILURE CONGESTIVE
     Dosage: 0.01 UG/KG/MIN, INTRAVENOUS
     Route: 042
     Dates: start: 20060302, end: 20060302

REACTIONS (1)
  - HYPOTENSION [None]
